FAERS Safety Report 7372299-3 (Version None)
Quarter: 2011Q1

REPORT INFORMATION
  Report Type: 
  Country: None (occurrence: None)
  Receive Date: 20110324
  Receipt Date: 20110316
  Transmission Date: 20110831
  Serious: Yes (Hospitalization)
  Sender: FDA-Public Use
  Company Number: B0537726A

PATIENT
  Sex: Female
  Weight: 67 kg

DRUGS (3)
  1. LENALIDOMIDE [Suspect]
     Indication: MULTIPLE MYELOMA
     Dosage: 10MG PER DAY
     Route: 048
     Dates: start: 20080304
  2. MELPHALAN [Suspect]
     Indication: MULTIPLE MYELOMA
     Dosage: 12MG PER DAY
     Route: 048
     Dates: start: 20080304
  3. PREDNISONE [Suspect]
     Indication: MULTIPLE MYELOMA
     Dosage: 134MG PER DAY
     Route: 048
     Dates: start: 20080304

REACTIONS (7)
  - TREMOR [None]
  - PERIPHERAL SENSORY NEUROPATHY [None]
  - RASH [None]
  - DIARRHOEA [None]
  - OEDEMA PERIPHERAL [None]
  - FATIGUE [None]
  - PYREXIA [None]
